FAERS Safety Report 16055995 (Version 2)
Quarter: 2019Q1

REPORT INFORMATION
  Report Type: Report from Study
  Country: US (occurrence: US)
  Receive Date: 20190311
  Receipt Date: 20190329
  Transmission Date: 20190418
  Serious: Yes (Hospitalization)
  Sender: FDA-Public Use
  Company Number: US-TESAROUBC-2018-TSO2518-US

PATIENT
  Age: 46 Year
  Sex: Female

DRUGS (3)
  1. ZEJULA [Suspect]
     Active Substance: NIRAPARIB
     Dosage: 300 MG, QD
     Route: 048
  2. ZEJULA [Suspect]
     Active Substance: NIRAPARIB
     Indication: FALLOPIAN TUBE CANCER
     Dosage: 300 MG, QPM WITH FOOD
     Route: 048
     Dates: start: 20181121
  3. ZEJULA [Suspect]
     Active Substance: NIRAPARIB
     Dosage: 200 MG QPM (300 MG ON SOME DAYS)

REACTIONS (17)
  - Vertigo [Unknown]
  - Carbohydrate antigen 125 increased [Unknown]
  - Fatigue [Unknown]
  - Limb discomfort [Unknown]
  - Gingival disorder [Unknown]
  - Asthenia [Unknown]
  - Dyspnoea [Unknown]
  - Transfusion [Unknown]
  - Musculoskeletal discomfort [Unknown]
  - Decreased appetite [Unknown]
  - Terminal insomnia [Unknown]
  - Dizziness [Unknown]
  - Discomfort [Unknown]
  - Weight decreased [Unknown]
  - Palpitations [Unknown]
  - Abdominal distension [Unknown]
  - Inappropriate schedule of product administration [Unknown]

NARRATIVE: CASE EVENT DATE: 201811
